FAERS Safety Report 19259735 (Version 1)
Quarter: 2021Q2

REPORT INFORMATION
  Report Type: Spontaneous
  Country: US (occurrence: US)
  Receive Date: 20210514
  Receipt Date: 20210514
  Transmission Date: 20210717
  Serious: No
  Sender: FDA-Public Use
  Company Number: US-ROMARKLABS-2020-US-000288

PATIENT
  Age: 36 Year
  Sex: Female

DRUGS (2)
  1. FLUCONAZOLE. [Concomitant]
     Active Substance: FLUCONAZOLE
     Indication: LYME DISEASE
  2. ALINIA [Suspect]
     Active Substance: NITAZOXANIDE
     Indication: LYME DISEASE
     Dosage: 400 MG TWICE DAILY
     Route: 048
     Dates: start: 202009, end: 202011

REACTIONS (1)
  - Reflux laryngitis [Unknown]

NARRATIVE: CASE EVENT DATE: 202011
